FAERS Safety Report 8576956-2 (Version None)
Quarter: 2012Q3

REPORT INFORMATION
  Report Type: 
  Country: None (occurrence: None)
  Receive Date: 20120807
  Receipt Date: 20120731
  Transmission Date: 20120928
  Serious: Yes (Other)
  Sender: FDA-Public Use
  Company Number: BE-UCBSA-060692

PATIENT
  Age: 25 Year
  Sex: Female
  Weight: 54 kg

DRUGS (3)
  1. TOPAMAX [Concomitant]
     Indication: EPILEPSY
     Dosage: DOSE REDUCED
     Route: 048
  2. TOPAMAX [Concomitant]
  3. VIMPAT [Suspect]
     Indication: EPILEPSY
     Route: 048

REACTIONS (1)
  - CONVULSION [None]
